FAERS Safety Report 8099024-5 (Version None)
Quarter: 2012Q1

REPORT INFORMATION
  Report Type: 
  Country: None (occurrence: None)
  Receive Date: 20120131
  Receipt Date: 20120127
  Transmission Date: 20120608
  Serious: Yes (Other)
  Sender: FDA-Public Use
  Company Number: JP-JNJFOC-20120112707

PATIENT

DRUGS (2)
  1. ITRACONAZOLE [Suspect]
     Indication: PRODUCT USED FOR UNKNOWN INDICATION
     Dosage: 20 ML FOR 2 WEEKS
     Route: 048
  2. ANTIBIOTIC [Concomitant]
     Route: 065

REACTIONS (2)
  - PSEUDOMEMBRANOUS COLITIS [None]
  - PLATELET COUNT DECREASED [None]
